FAERS Safety Report 5837773-7 (Version None)
Quarter: 2008Q3

REPORT INFORMATION
  Report Type: 
  Country: None (occurrence: None)
  Receive Date: 20080806
  Receipt Date: 20080729
  Transmission Date: 20090109
  Serious: Yes (Death)
  Sender: FDA-Public Use
  Company Number: 163-21880-08070560

PATIENT
  Age: 40 Year
  Sex: Male

DRUGS (2)
  1. REVLIMID [Suspect]
     Indication: MULTIPLE MYELOMA
     Dosage: X 21 DAYS , OFF 1 WEEK, ORAL X21 DAYS EVERY 28 DAYS, ORAL
     Route: 048
     Dates: start: 20080505, end: 20080501
  2. REVLIMID [Suspect]
     Indication: MULTIPLE MYELOMA
     Dosage: X 21 DAYS , OFF 1 WEEK, ORAL X21 DAYS EVERY 28 DAYS, ORAL
     Route: 048
     Dates: start: 20080528, end: 20080601

REACTIONS (2)
  - MALIGNANT NEOPLASM PROGRESSION [None]
  - MULTIPLE MYELOMA [None]
